FAERS Safety Report 8612938-X (Version None)
Quarter: 2012Q3

REPORT INFORMATION
  Report Type: 
  Country: None (occurrence: None)
  Receive Date: 20120822
  Receipt Date: 20120809
  Transmission Date: 20120928
  Serious: Yes (Other)
  Sender: FDA-Public Use
  Company Number: CHPA2012US017876

PATIENT
  Age: 71 Year
  Sex: Female

DRUGS (4)
  1. KERI ORIGINAL [Suspect]
     Dosage: UNK, IN MORNING AND AT BEDTIME
     Route: 061
  2. ERYTHROMYCIN [Suspect]
     Dosage: UNK, UNK
  3. VITAMINS NOS [Concomitant]
     Dosage: UNK, UNK
  4. VASELINE [Concomitant]
     Dosage: AT MORNING AND BEDTIME ON FACE
     Route: 061

REACTIONS (1)
  - GASTRIC HAEMORRHAGE [None]
